FAERS Safety Report 10045956 (Version 2)
Quarter: 2014Q1

REPORT INFORMATION
  Report Type: Spontaneous
  Country: US (occurrence: US)
  Receive Date: 20140330
  Receipt Date: 20140330
  Transmission Date: 20141002
  Serious: Yes (Disabling)
  Sender: FDA-Public Use
  Company Number: US-GE HEALTHCARE MEDICAL DIAGNOSTICS-OSCN-PR-0711S-0442

PATIENT
  Age: 36 Year
  Sex: Female

DRUGS (10)
  1. OMNISCAN [Suspect]
     Indication: VISUAL IMPAIRMENT
     Dates: start: 20030108, end: 20030108
  2. OMNISCAN [Suspect]
     Indication: MAMMOGRAM ABNORMAL
     Dates: start: 20040108, end: 20040108
  3. OMNISCAN [Suspect]
     Indication: TRANSPLANT EVALUATION
     Dates: start: 20041012, end: 20041012
  4. OMNISCAN [Suspect]
     Indication: HEADACHE
     Dates: start: 20050217, end: 20050217
  5. OMNISCAN [Suspect]
     Indication: SUBDURAL HAEMORRHAGE
     Dates: start: 20050505, end: 20050505
  6. OMNISCAN [Suspect]
     Indication: POLYMYOSITIS
     Dates: start: 20060125, end: 20060125
  7. OMNISCAN [Suspect]
     Indication: LUPUS NEPHRITIS
     Dates: start: 20060127, end: 20060127
  8. OMNISCAN [Suspect]
     Dates: start: 20060818, end: 20060818
  9. OMNISCAN [Suspect]
     Dates: start: 20060818, end: 20060818
  10. OPTIMARK [Suspect]
     Indication: SPLENOMEGALY
     Dates: start: 20061112, end: 20061112

REACTIONS (1)
  - Nephrogenic systemic fibrosis [Not Recovered/Not Resolved]
